FAERS Safety Report 9720883 (Version 3)
Quarter: 2014Q1

REPORT INFORMATION
  Report Type: Spontaneous
  Country: IT (occurrence: IT)
  Receive Date: 20131129
  Receipt Date: 20140107
  Transmission Date: 20141002
  Serious: Yes (Hospitalization)
  Sender: FDA-Public Use
  Company Number: IT-ABBVIE-13P-083-1174304-00

PATIENT
  Age: 17 Year
  Sex: Male

DRUGS (7)
  1. DEPAKIN CHRONO [Suspect]
     Indication: SUICIDE ATTEMPT
     Dosage: EXTENDED-RELEASE TABLET: 600 MG TOTAL
     Route: 048
     Dates: start: 20130624, end: 20130624
  2. DEPAKIN (VALPROATE SODIUM) [Suspect]
     Indication: SUICIDE ATTEMPT
     Route: 048
  3. DEPAKIN (VALPROATE SODIUM) [Suspect]
     Indication: DEPRESSION
     Dosage: 1000 MG TOTAL
     Route: 048
     Dates: start: 20130624, end: 20130624
  4. CIPRALEX [Suspect]
     Indication: SUICIDE ATTEMPT
     Dosage: SOLUTION: 20 DROPS TOTAL
     Route: 048
     Dates: start: 20130624, end: 20130624
  5. EN [Suspect]
     Indication: SUICIDE ATTEMPT
     Dosage: 20 DROPS TOTAL
     Route: 048
     Dates: start: 20130624, end: 20130624
  6. EN [Suspect]
     Indication: DEPRESSION
     Dosage: SOLUTION DROPS: 24 DROPS TOTAL
     Route: 048
     Dates: start: 20130624, end: 20130624
  7. SERTRALINE HYDROCHLORIDE [Concomitant]
     Indication: PRODUCT USED FOR UNKNOWN INDICATION

REACTIONS (4)
  - Drug abuse [Unknown]
  - Suicide attempt [Unknown]
  - Nausea [Unknown]
  - Tremor [Unknown]
